FAERS Safety Report 4717619-0 (Version None)
Quarter: 2005Q3

REPORT INFORMATION
  Report Type: 
  Country: None (occurrence: None)
  Receive Date: 20050712
  Receipt Date: 20050502
  Transmission Date: 20060218
  Serious: No
  Sender: FDA-Public Use
  Company Number: 2005S1000026

PATIENT
  Age: 74 Year
  Sex: Female
  Weight: 61.4 kg

DRUGS (27)
  1. CUBICIN [Suspect]
     Indication: MEDICAL DEVICE COMPLICATION
     Dosage: 500 MG; Q24H; IV
     Route: 042
     Dates: start: 20050124, end: 20050128
  2. CUBICIN [Suspect]
     Indication: STAPHYLOCOCCAL INFECTION
     Dosage: 500 MG; Q24H; IV
     Route: 042
     Dates: start: 20050124, end: 20050128
  3. ATENOLOL [Concomitant]
  4. PRINIVIL [Concomitant]
  5. LASIX [Concomitant]
  6. POTASSIUM CHLORIDE [Concomitant]
  7. SYNTHROID [Concomitant]
  8. ENOXAPARIN SODIUM [Concomitant]
  9. PANTOPRAZOLE [Concomitant]
  10. RISPERIDONE [Concomitant]
  11. LEXAPRO [Concomitant]
  12. LOPERAMIDE HCL [Concomitant]
  13. AMBIEN [Concomitant]
  14. BISACODYL [Concomitant]
  15. TYLENOL (CAPLET) [Concomitant]
  16. ATARAX [Concomitant]
  17. BENADRYL [Concomitant]
  18. ANZEMET [Concomitant]
  19. MAGNESIUM OXIDE [Concomitant]
  20. PROPOFOL [Concomitant]
  21. FENTANYL [Concomitant]
  22. VERSED [Concomitant]
  23. MARCAINE [Concomitant]
  24. VANCOMYCIN [Concomitant]
  25. ANCEF [Concomitant]
  26. MICONAZOLE [Concomitant]
  27. BACITRACIN [Concomitant]

REACTIONS (1)
  - BLOOD CREATININE INCREASED [None]
